FAERS Safety Report 16190451 (Version 1)
Quarter: 2019Q2

REPORT INFORMATION
  Report Type: Spontaneous
  Country: US (occurrence: US)
  Receive Date: 20190412
  Receipt Date: 20190412
  Transmission Date: 20190711
  Serious: No
  Sender: FDA-Public Use
  Company Number: US-PFIZER INC-2019152978

PATIENT
  Age: 49 Year
  Sex: Female
  Weight: 95.25 kg

DRUGS (2)
  1. CHANTIX [Suspect]
     Active Substance: VARENICLINE TARTRATE
     Dosage: 1 MG, 1X/DAY
     Route: 048
     Dates: start: 2019, end: 201903
  2. CHANTIX [Suspect]
     Active Substance: VARENICLINE TARTRATE
     Indication: SMOKING CESSATION THERAPY
     Dosage: 1 MG, 2X/DAY
     Route: 048
     Dates: start: 201811, end: 2019

REACTIONS (7)
  - Personality change [Unknown]
  - Condition aggravated [Unknown]
  - Crying [Not Recovered/Not Resolved]
  - Moaning [Unknown]
  - Dry mouth [Recovering/Resolving]
  - Logorrhoea [Not Recovered/Not Resolved]
  - Dysgeusia [Unknown]

NARRATIVE: CASE EVENT DATE: 201811
